FAERS Safety Report 4599495-2 (Version None)
Quarter: 2005Q1

REPORT INFORMATION
  Report Type: 
  Country: None (occurrence: None)
  Receive Date: 20050303
  Receipt Date: 20050210
  Transmission Date: 20050727
  Serious: Yes (Other)
  Sender: FDA-Public Use
  Company Number: USA050290519

PATIENT
  Age: 45 Year
  Sex: Female

DRUGS (5)
  1. STRATTERA [Suspect]
     Dosage: 60 MG DAY
  2. PREVACID [Concomitant]
  3. APO-METOPROLOL (METOPROLOL TARTRATE) [Concomitant]
  4. ORAL CONTRACEPTIVE NOS [Concomitant]
  5. ESTROSTEP [Concomitant]

REACTIONS (1)
  - CEREBROVASCULAR ACCIDENT [None]
